FAERS Safety Report 21713127 (Version 1)
Quarter: 2022Q4

REPORT INFORMATION
  Report Type: Spontaneous
  Country: US (occurrence: None)
  Receive Date: 20221208
  Receipt Date: 20221208
  Transmission Date: 20230113
  Serious: Yes (Life-Threatening, Hospitalization)
  Sender: FDA-Public Use
  Company Number: None

PATIENT
  Age: 75 Year
  Sex: Male
  Weight: 121.56 kg

DRUGS (2)
  1. TICAGRELOR [Suspect]
     Active Substance: TICAGRELOR
     Indication: Coronary arterial stent insertion
     Dosage: FREQUENCY : TWICE A DAY;?
     Route: 048
     Dates: start: 20220826, end: 20221004
  2. ASPIRIN [Suspect]
     Active Substance: ASPIRIN
     Indication: Coronary arterial stent insertion
     Dosage: FREQUENCY : DAILY;?
     Route: 048
     Dates: start: 20220826

REACTIONS (2)
  - Memory impairment [None]
  - Subdural haematoma [None]

NARRATIVE: CASE EVENT DATE: 20221004
